FAERS Safety Report 8099312-2 (Version None)
Quarter: 2012Q1

REPORT INFORMATION
  Report Type: 
  Country: None (occurrence: None)
  Receive Date: 20120131
  Receipt Date: 20120119
  Transmission Date: 20120608
  Serious: Yes (Hospitalization)
  Sender: FDA-Public Use
  Company Number: US-PFIZER INC-2012014809

PATIENT
  Age: 50 Year
  Sex: Female
  Weight: 116.9 kg

DRUGS (8)
  1. SUNITINIB MALATE [Suspect]
     Indication: MALIGNANT MELANOMA
     Dosage: 37.5 MG, 1X/DAY, ON DAYS 1-28
     Route: 048
     Dates: start: 20111222, end: 20111224
  2. BEVACIZUMAB [Suspect]
     Indication: MALIGNANT MELANOMA
     Dosage: 5 MG/KG, OVER 90-30 MIN ON DAYS 1, 15 AND 29
     Route: 042
     Dates: start: 20111222
  3. VICODIN [Concomitant]
     Dosage: 5-500 MG ORAL TABLET
     Route: 048
  4. ZOCOR [Concomitant]
     Dosage: 20 MG, TAB
  5. ALBUTEROL SULFATE [Concomitant]
     Dosage: 90 UG, UNK
     Route: 055
  6. ACETYLSALICYLIC ACID SRT [Suspect]
     Dosage: ASPIR-LOW 81 MG TAB
  7. NITROSTAT [Concomitant]
     Dosage: 0.4 MG SUBLINGUAL SL TABLET
     Route: 060
  8. RANOLAZINE [Concomitant]
     Dosage: 500 MG, 12HR TABLET
     Route: 048

REACTIONS (1)
  - MENORRHAGIA [None]
